FAERS Safety Report 16530319 (Version 1)
Quarter: 2019Q3

REPORT INFORMATION
  Report Type: Report from Study
  Country: US (occurrence: US)
  Receive Date: 20190704
  Receipt Date: 20190704
  Transmission Date: 20191004
  Serious: Yes (Hospitalization, Other)
  Sender: FDA-Public Use
  Company Number: US-ASPEN-GLO2019US006528

PATIENT
  Age: 21 Month
  Sex: Male
  Weight: 14.6 kg

DRUGS (42)
  1. RUXOLITINIB [Suspect]
     Active Substance: RUXOLITINIB
     Dosage: 30 MG, BID
     Route: 048
     Dates: start: 20190310
  2. VINCRISTINE [Suspect]
     Active Substance: VINCRISTINE
     Dosage: 0.9 MG, 1 DOSAGE TOTAL
     Route: 042
     Dates: start: 20181029
  3. METHOTREXATE. [Suspect]
     Active Substance: METHOTREXATE
     Dosage: 10 MG, 1 DOSAGE TOTAL
     Route: 037
     Dates: start: 20181022
  4. METHOTREXATE. [Suspect]
     Active Substance: METHOTREXATE
     Dosage: 12 MG, 1 DOSAGE TOTAL
     Route: 037
     Dates: start: 20190408, end: 20190408
  5. MERCAPTOPURINE. [Suspect]
     Active Substance: MERCAPTOPURINE
     Dosage: 15 MG QHS
     Route: 065
     Dates: start: 20190311
  6. LEUCOVORIN. [Suspect]
     Active Substance: LEUCOVORIN
     Indication: ACUTE LYMPHOCYTIC LEUKAEMIA
     Dosage: 10 MG
     Route: 042
     Dates: start: 20190109
  7. RUXOLITINIB [Suspect]
     Active Substance: RUXOLITINIB
     Dosage: 30 MG, BID
     Route: 048
     Dates: start: 20190421
  8. RUXOLITINIB [Suspect]
     Active Substance: RUXOLITINIB
     Dosage: 30 MG, BID
     Route: 048
     Dates: start: 20190602
  9. VINCRISTINE [Suspect]
     Active Substance: VINCRISTINE
     Indication: ACUTE LYMPHOCYTIC LEUKAEMIA
     Dosage: 0.9 MG, 1 DOSAGE TOTAL
     Route: 042
     Dates: start: 20181022
  10. PEGASPARGASE [Suspect]
     Active Substance: PEGASPARGASE
     Dosage: 1500 IU, 1 DOSAGE TOTAL
     Route: 042
     Dates: start: 20181210
  11. METHOTREXATE. [Suspect]
     Active Substance: METHOTREXATE
     Dosage: HIGH DOSE 3050 MG
     Route: 042
     Dates: start: 20190107
  12. MERCAPTOPURINE. [Suspect]
     Active Substance: MERCAPTOPURINE
     Indication: ACUTE LYMPHOCYTIC LEUKAEMIA
     Dosage: 36 MG, QD
     Route: 048
     Dates: start: 20181126
  13. ACETAMINOPHEN. [Concomitant]
     Active Substance: ACETAMINOPHEN
     Indication: PRODUCT USED FOR UNKNOWN INDICATION
     Dosage: UNK
     Route: 065
     Dates: start: 20190312
  14. CYTARABINE. [Suspect]
     Active Substance: CYTARABINE
     Dosage: 45 MG, QD
     Route: 042
     Dates: start: 20190531
  15. MERCAPTOPURINE. [Suspect]
     Active Substance: MERCAPTOPURINE
     Dosage: 36 MG, QD
     Route: 048
     Dates: start: 20190107, end: 20190314
  16. DOXORUBICIN [Suspect]
     Active Substance: DOXORUBICIN
     Dosage: 16 MG, 1 DOSAGE TOTAL
     Route: 042
     Dates: start: 20190422
  17. DEXAMETHASONE. [Suspect]
     Active Substance: DEXAMETHASONE
     Dosage: 3.2 MG, BID
     Route: 048
     Dates: start: 20190423
  18. CYCLOPHOSPHAMIDE. [Suspect]
     Active Substance: CYCLOPHOSPHAMIDE
     Indication: ACUTE LYMPHOCYTIC LEUKAEMIA
     Dosage: 640 MG, 1 DOSAGE TOTAL
     Route: 042
     Dates: start: 20181008
  19. RUXOLITINIB [Suspect]
     Active Substance: RUXOLITINIB
     Dosage: 30 MG, BID
     Route: 048
     Dates: start: 20181209
  20. VINCRISTINE [Suspect]
     Active Substance: VINCRISTINE
     Dosage: 0.9 MG, 1 DOSAGE TOTAL
     Route: 042
     Dates: start: 20190603
  21. PEGASPARGASE [Suspect]
     Active Substance: PEGASPARGASE
     Indication: ACUTE LYMPHOCYTIC LEUKAEMIA
     Dosage: 1500 IU, 1 DOSAGE TOTAL
     Route: 042
     Dates: start: 20181022
  22. METHOTREXATE. [Suspect]
     Active Substance: METHOTREXATE
     Dosage: 10 MG, 1 DOSAGE TOTAL
     Route: 037
     Dates: start: 20181029
  23. PEGASPARGASE [Suspect]
     Active Substance: PEGASPARGASE
     Dosage: 1500 IU, 1 DOSAGE TOTAL
     Route: 042
     Dates: start: 20190603
  24. METHOTREXATE. [Suspect]
     Active Substance: METHOTREXATE
     Dosage: HIGH DOSE 3050 MG
     Route: 042
     Dates: start: 20190311
  25. CYTARABINE. [Suspect]
     Active Substance: CYTARABINE
     Indication: ACUTE LYMPHOCYTIC LEUKAEMIA
     Dosage: 45 MG, QD
     Route: 042
     Dates: start: 20181008
  26. DOXORUBICIN [Suspect]
     Active Substance: DOXORUBICIN
     Indication: ACUTE LYMPHOCYTIC LEUKAEMIA
     Dosage: 16 MG, 1 DOSAGE TOTAL
     Route: 042
     Dates: start: 20190408
  27. CYCLOPHOSPHAMIDE. [Suspect]
     Active Substance: CYCLOPHOSPHAMIDE
     Dosage: 640 MG, 1 DOSAGE TOTAL
     Route: 042
     Dates: start: 20190520
  28. VINCRISTINE [Suspect]
     Active Substance: VINCRISTINE
     Dosage: 0.9 MG, 1 DOSAGE TOTAL
     Route: 042
     Dates: start: 20181217
  29. VINCRISTINE [Suspect]
     Active Substance: VINCRISTINE
     Dosage: 0.9 MG, 1 DOSAGE TOTAL
     Route: 042
     Dates: start: 20190311
  30. VINCRISTINE [Suspect]
     Active Substance: VINCRISTINE
     Dosage: 0.9 MG, 1 DOSAGE TOTAL
     Route: 042
     Dates: start: 20190422
  31. PEGASPARGASE [Suspect]
     Active Substance: PEGASPARGASE
     Dosage: 1500 IU, 1 DOSAGE TOTAL
     Route: 042
     Dates: start: 20190411
  32. METHOTREXATE. [Suspect]
     Active Substance: METHOTREXATE
     Dosage: 10 MG, 1 DOSAGE TOTAL
     Route: 037
     Dates: start: 20190528
  33. METHOTREXATE. [Suspect]
     Active Substance: METHOTREXATE
     Dosage: UNK
     Route: 048
     Dates: start: 20190608
  34. MERCAPTOPURINE. [Suspect]
     Active Substance: MERCAPTOPURINE
     Dosage: 36 MG, QD
     Route: 048
     Dates: start: 20181209
  35. RUXOLITINIB [Suspect]
     Active Substance: RUXOLITINIB
     Dosage: 30 MG, BID
     Route: 048
     Dates: start: 20181021
  36. CYTARABINE. [Suspect]
     Active Substance: CYTARABINE
     Dosage: 45 MG, QD
     Route: 042
     Dates: start: 20181017
  37. LEUCOVORIN. [Suspect]
     Active Substance: LEUCOVORIN
     Dosage: 10 MG
     Route: 042
     Dates: start: 20190313
  38. TIOGUANINE [Suspect]
     Active Substance: THIOGUANINE ANHYDROUS
     Indication: ACUTE LYMPHOCYTIC LEUKAEMIA
     Dosage: 38 MG, QD
     Route: 048
     Dates: start: 20190520
  39. TIOGUANINE [Suspect]
     Active Substance: THIOGUANINE ANHYDROUS
     Dosage: 38 MG, QD
     Route: 048
     Dates: start: 20190602
  40. RUXOLITINIB [Suspect]
     Active Substance: RUXOLITINIB
     Indication: ACUTE LYMPHOCYTIC LEUKAEMIA
     Dosage: 30 MG, BID
     Route: 048
     Dates: start: 20181008
  41. METHOTREXATE. [Suspect]
     Active Substance: METHOTREXATE
     Indication: ACUTE LYMPHOCYTIC LEUKAEMIA
     Dosage: 10 MG, 1 DOSAGE TOTAL
     Route: 037
     Dates: start: 20181008
  42. DEXAMETHASONE. [Suspect]
     Active Substance: DEXAMETHASONE
     Indication: ACUTE LYMPHOCYTIC LEUKAEMIA
     Dosage: 3.2 MG, BID
     Route: 048
     Dates: start: 20190408

REACTIONS (1)
  - Febrile neutropenia [Not Recovered/Not Resolved]

NARRATIVE: CASE EVENT DATE: 20190604
